FAERS Safety Report 7137321-8 (Version None)
Quarter: 2010Q4

REPORT INFORMATION
  Report Type: 
  Country: None (occurrence: None)
  Receive Date: 20101206
  Receipt Date: 20101123
  Transmission Date: 20110411
  Serious: Yes (Other)
  Sender: FDA-Public Use
  Company Number: PHHY2010BR80487

PATIENT
  Sex: Female

DRUGS (1)
  1. DIOVAN [Suspect]

REACTIONS (5)
  - BLOOD PRESSURE INCREASED [None]
  - DRUG DOSE OMISSION [None]
  - EYELID OPERATION [None]
  - MEMORY IMPAIRMENT [None]
  - TREATMENT NONCOMPLIANCE [None]
